FAERS Safety Report 18951607 (Version 3)
Quarter: 2021Q2

REPORT INFORMATION
  Report Type: Report from Study
  Country: None (occurrence: US)
  Receive Date: 20210301
  Receipt Date: 20210409
  Transmission Date: 20210717
  Serious: Yes (Other)
  Sender: FDA-Public Use
  Company Number: US-ABBVIE-21K-163-3790310-00

PATIENT
  Age: 78 Year
  Sex: Female
  Weight: 72.64 kg

DRUGS (4)
  1. METOPROLOL. [Concomitant]
     Active Substance: METOPROLOL
     Indication: PRODUCT USED FOR UNKNOWN INDICATION
  2. POTASSIUM [Concomitant]
     Active Substance: POTASSIUM
     Indication: PRODUCT USED FOR UNKNOWN INDICATION
  3. HUMIRA [Suspect]
     Active Substance: ADALIMUMAB
     Indication: PSORIASIS
     Dosage: CITRATE FREE
     Route: 058
     Dates: start: 2020
  4. CLARITIN [Concomitant]
     Active Substance: LORATADINE
     Indication: SINUS DISORDER

REACTIONS (6)
  - Loss of consciousness [Recovering/Resolving]
  - Rib fracture [Recovering/Resolving]
  - Influenza like illness [Recovered/Resolved]
  - COVID-19 [Recovered/Resolved]
  - Loss of consciousness [Recovered/Resolved]
  - Fall [Unknown]

NARRATIVE: CASE EVENT DATE: 202101
